FAERS Safety Report 8445688-3 (Version None)
Quarter: 2012Q2

REPORT INFORMATION
  Report Type: 
  Country: None (occurrence: None)
  Receive Date: 20120618
  Receipt Date: 20120607
  Transmission Date: 20120825
  Serious: Yes (Hospitalization, Disabling)
  Sender: FDA-Public Use
  Company Number: US-GLAXOSMITHKLINE-A0813505A

PATIENT
  Age: 62 Year
  Sex: Male

DRUGS (1)
  1. AVANDAMET [Suspect]
     Indication: DIABETES MELLITUS
     Route: 048
     Dates: start: 20010920, end: 20090210

REACTIONS (5)
  - HEART INJURY [None]
  - BLOOD DISORDER [None]
  - HYPOTENSION [None]
  - CEREBROVASCULAR ACCIDENT [None]
  - RENAL FAILURE [None]
